FAERS Safety Report 8035942-1 (Version None)
Quarter: 2012Q1

REPORT INFORMATION
  Report Type: 
  Country: None (occurrence: None)
  Receive Date: 20120111
  Receipt Date: 20120103
  Transmission Date: 20120608
  Serious: Yes (Hospitalization)
  Sender: FDA-Public Use
  Company Number: US-BAYER-2011-035831

PATIENT
  Age: 17 Year
  Sex: Female
  Weight: 54.422 kg

DRUGS (3)
  1. YAZ [Suspect]
     Indication: CONTRACEPTION
     Dosage: UNK
     Dates: start: 20080501, end: 20080501
  2. NORTREL 7/7/7 [Concomitant]
     Dosage: UNK
     Dates: start: 20080901, end: 20081201
  3. JOLESSA [Concomitant]
     Dosage: UNK
     Dates: start: 20080601, end: 20080901

REACTIONS (7)
  - PAIN [None]
  - CONSTIPATION [None]
  - GALLBLADDER INJURY [None]
  - VOMITING [None]
  - ANXIETY [None]
  - MALAISE [None]
  - EMOTIONAL DISTRESS [None]
